FAERS Safety Report 22248652 (Version 1)
Quarter: 2023Q2

REPORT INFORMATION
  Report Type: Spontaneous
  Country: US (occurrence: US)
  Receive Date: 20230425
  Receipt Date: 20230425
  Transmission Date: 20230722
  Serious: Yes (Other)
  Sender: FDA-Public Use
  Company Number: US-drreddys-SPO/USA/23/0163975

PATIENT
  Age: 16 Year
  Sex: Female

DRUGS (1)
  1. ZENATANE [Suspect]
     Active Substance: ISOTRETINOIN
     Indication: Acne
     Dosage: RMA ISSUE DATE: 28 DECEMBER 2022 09:45:04 AM, 03 FEBRUARY 2023 01:07:02 PM AND 07 MARCH 2023 04:18:4

REACTIONS (2)
  - Mood altered [Unknown]
  - Crying [Unknown]
